FAERS Safety Report 17941372 (Version 1)
Quarter: 2020Q2

REPORT INFORMATION
  Report Type: Spontaneous
  Country: US (occurrence: US)
  Receive Date: 20200625
  Receipt Date: 20200625
  Transmission Date: 20200714
  Serious: No
  Sender: FDA-Public Use
  Company Number: US-SA-2020SA158866

PATIENT

DRUGS (4)
  1. DUPIXENT [Suspect]
     Active Substance: DUPILUMAB
     Indication: DERMATITIS ATOPIC
     Dosage: 300 MG, QOW
     Route: 058
     Dates: start: 20181001
  2. ZIOPTAN [Concomitant]
     Active Substance: TAFLUPROST
  3. TIMOPTIC [Concomitant]
     Active Substance: TIMOLOL MALEATE
  4. COLCHICINE. [Concomitant]
     Active Substance: COLCHICINE

REACTIONS (2)
  - Pruritus [Recovered/Resolved with Sequelae]
  - Dermatitis atopic [Recovered/Resolved]
